FAERS Safety Report 13227903 (Version 13)
Quarter: 2018Q3

REPORT INFORMATION
  Report Type: Report from Study
  Country: None (occurrence: JP)
  Receive Date: 20170213
  Receipt Date: 20180713
  Transmission Date: 20181010
  Serious: Yes (Hospitalization)
  Sender: FDA-Public Use
  Company Number: JP-ABBVIE-17P-087-1871682-00

PATIENT
  Age: 74 Year
  Sex: Female
  Weight: 44 kg

DRUGS (29)
  1. DUODOPA [Suspect]
     Active Substance: CARBIDOPA\LEVODOPA
     Dosage: MD: 4.5 ML, CD: 1.7 ML/HR X 14 HR, ED: 1 ML/UNIT X 2
     Route: 050
     Dates: start: 20170228, end: 20170314
  2. DUODOPA [Suspect]
     Active Substance: CARBIDOPA\LEVODOPA
     Dosage: MD: 4.5 ML, CD: 2.2 ML/HR X 14 HR, ED: 1 ML/UNIT X 2
     Route: 050
     Dates: start: 20170411, end: 20180228
  3. DUODOPA [Suspect]
     Active Substance: CARBIDOPA\LEVODOPA
     Dosage: MD: 4.5 ML, CD: 1.4 ML/HR X 14 HR, ED: 1 ML/UNIT X 2
     Route: 050
     Dates: start: 20170124, end: 20170214
  4. QUETIAPINE FUMARATE. [Concomitant]
     Active Substance: QUETIAPINE FUMARATE
     Route: 048
     Dates: start: 20170321, end: 20170327
  5. FOLIC ACID. [Concomitant]
     Active Substance: FOLIC ACID
     Dates: start: 20171220
  6. DUODOPA [Suspect]
     Active Substance: CARBIDOPA\LEVODOPA
     Dosage: MD: 4.5 ML, CD: 1.5 ML/HR X 14 HR, ED: 1 ML/UNIT X 2
     Route: 050
     Dates: start: 20170214, end: 20170228
  7. QUETIAPINE FUMARATE. [Concomitant]
     Active Substance: QUETIAPINE FUMARATE
     Route: 048
     Dates: start: 20170209, end: 20170227
  8. QUETIAPINE FUMARATE. [Concomitant]
     Active Substance: QUETIAPINE FUMARATE
     Route: 048
     Dates: start: 20170425, end: 20170508
  9. PYRIDOXAL PHOSPHATE HYDRATE [Concomitant]
     Route: 048
     Dates: start: 20171220
  10. LEVODOPA/CARBIDOPA HYDRATE [Concomitant]
     Indication: PARKINSON^S DISEASE
     Route: 048
     Dates: start: 20180228, end: 20180228
  11. QUETIAPINE FUMARATE. [Concomitant]
     Active Substance: QUETIAPINE FUMARATE
     Indication: PRODUCT USED FOR UNKNOWN INDICATION
     Route: 048
     Dates: end: 20170209
  12. PURIFIED SODIUM HYALURONATE [Concomitant]
     Indication: PRODUCT USED FOR UNKNOWN INDICATION
     Dosage: Q.S
     Route: 061
     Dates: start: 20161220, end: 20170107
  13. PYRIDOXAL PHOSPHATE HYDRATE [Concomitant]
     Indication: FALL
     Route: 048
     Dates: end: 20171219
  14. ISTRADEFYLLINE [Concomitant]
     Active Substance: ISTRADEFYLLINE
     Indication: PARKINSON^S DISEASE
     Route: 048
     Dates: start: 20180116
  15. DUODOPA [Suspect]
     Active Substance: CARBIDOPA\LEVODOPA
     Dosage: MD: 4.5 ML, CD: 2.2 ML/HR X 14 HR, ED: 1 ML/UNIT X 1
     Route: 050
     Dates: start: 20180301
  16. MAGNESIUM OXIDE. [Suspect]
     Active Substance: MAGNESIUM OXIDE
     Route: 065
     Dates: start: 20170629
  17. QUETIAPINE FUMARATE. [Concomitant]
     Active Substance: QUETIAPINE FUMARATE
     Route: 048
     Dates: start: 20170228, end: 20170320
  18. FOLIC ACID. [Concomitant]
     Active Substance: FOLIC ACID
     Indication: FALL
     Route: 048
     Dates: end: 20171219
  19. LEVODOPA/CARBIDOPA HYDRATE [Concomitant]
     Route: 048
     Dates: start: 20180228, end: 20180301
  20. ISTRADEFYLLINE [Concomitant]
     Active Substance: ISTRADEFYLLINE
     Indication: SLEEP DISORDER
  21. DUODOPA [Suspect]
     Active Substance: CARBIDOPA\LEVODOPA
     Indication: PARKINSON^S DISEASE
     Dosage: MD: 4.5 ML, CD: 1.2 ML/HR X 14 HR, ED: 1 ML/UNIT X 2
     Route: 050
     Dates: start: 20161109, end: 20170124
  22. DUODOPA [Suspect]
     Active Substance: CARBIDOPA\LEVODOPA
     Dosage: MD: 4.5 ML, CD: 1.9 ML/HR X 14 HR, ED: 1 ML/UNIT X 2
     Route: 050
     Dates: start: 20170314, end: 20170328
  23. DUODOPA [Suspect]
     Active Substance: CARBIDOPA\LEVODOPA
     Dosage: MD: 4.5 ML, CD: 2.1 ML/HR X 14 HR, ED: 1 ML/UNIT X 2
     Route: 050
     Dates: start: 20170328, end: 20170411
  24. MAGNESIUM OXIDE. [Suspect]
     Active Substance: MAGNESIUM OXIDE
     Indication: PRODUCT USED FOR UNKNOWN INDICATION
     Route: 048
     Dates: end: 20170612
  25. MAGNESIUM OXIDE. [Suspect]
     Active Substance: MAGNESIUM OXIDE
     Route: 065
     Dates: start: 20170613, end: 20170829
  26. QUETIAPINE FUMARATE. [Concomitant]
     Active Substance: QUETIAPINE FUMARATE
     Route: 048
     Dates: start: 20170328, end: 20170424
  27. QUETIAPINE FUMARATE. [Concomitant]
     Active Substance: QUETIAPINE FUMARATE
     Route: 048
     Dates: start: 20170509
  28. LORAZEPAM. [Concomitant]
     Active Substance: LORAZEPAM
     Indication: PRODUCT USED FOR UNKNOWN INDICATION
     Route: 048
  29. LEVODOPA/CARBIDOPA HYDRATE [Concomitant]
     Route: 048
     Dates: start: 20180228, end: 20180228

REACTIONS (10)
  - Sputum retention [Not Recovered/Not Resolved]
  - Device leakage [Recovered/Resolved]
  - Device loosening [Recovered/Resolved]
  - Complication associated with device [Recovered/Resolved]
  - Cough [Not Recovered/Not Resolved]
  - Fall [Recovered/Resolved]
  - Anal incontinence [Recovered/Resolved]
  - Nasopharyngitis [Recovered/Resolved]
  - Device kink [Recovered/Resolved]
  - Device issue [Recovered/Resolved]

NARRATIVE: CASE EVENT DATE: 20170105
